FAERS Safety Report 6695216-8 (Version None)
Quarter: 2010Q2

REPORT INFORMATION
  Report Type: 
  Country: None (occurrence: None)
  Receive Date: 20100423
  Receipt Date: 20100415
  Transmission Date: 20101027
  Serious: Yes (Death)
  Sender: FDA-Public Use
  Company Number: JP-ABBOTT-10P-087-0633249-00

PATIENT
  Age: 73 Year
  Sex: Male
  Weight: 75.8 kg

DRUGS (5)
  1. LEUPROLIDE ACETATE [Suspect]
     Indication: PROSTATE CANCER STAGE III
     Route: 058
     Dates: start: 20060727, end: 20070709
  2. BICALUTAMIDE [Concomitant]
     Indication: PROSTATE CANCER STAGE III
     Route: 048
     Dates: start: 20060713, end: 20061016
  3. ETOPOSIDE [Concomitant]
     Indication: LYMPHOMA
     Route: 048
     Dates: start: 20060814, end: 20070827
  4. LOXONIN [Concomitant]
     Indication: BACK PAIN
     Route: 048
     Dates: end: 20070815
  5. OMEPRAL [Concomitant]
     Indication: GASTRIC ULCER
     Route: 048
     Dates: start: 20070808, end: 20071004

REACTIONS (1)
  - LYMPHOMA [None]
